FAERS Safety Report 9284156 (Version 3)
Quarter: 2013Q3

REPORT INFORMATION
  Report Type: Report from Study
  Country: US (occurrence: US)
  Receive Date: 20130510
  Receipt Date: 20130822
  Transmission Date: 20140515
  Serious: Yes (Hospitalization)
  Sender: FDA-Public Use
  Company Number: US-JNJFOC-20130503002

PATIENT
  Age: 8 Year
  Sex: Female
  Weight: 24.4 kg

DRUGS (5)
  1. REMICADE [Suspect]
     Indication: INFLAMMATORY BOWEL DISEASE
     Route: 042
  2. HUMIRA [Concomitant]
     Indication: INFLAMMATORY BOWEL DISEASE
     Route: 065
     Dates: start: 20120420
  3. ADDERALL [Concomitant]
     Route: 065
  4. CLONIDINE [Concomitant]
     Route: 065
  5. FERROUS SULFATE [Concomitant]
     Route: 065

REACTIONS (1)
  - Gastrointestinal stoma complication [Recovered/Resolved]
